FAERS Safety Report 13782773 (Version 4)
Quarter: 2017Q3

REPORT INFORMATION
  Report Type: Spontaneous
  Country: US (occurrence: US)
  Receive Date: 20170724
  Receipt Date: 20170927
  Transmission Date: 20171127
  Serious: Yes (Hospitalization, Other)
  Sender: FDA-Public Use
  Company Number: US-AMGEN-USASP2017107283

PATIENT
  Age: 96 Year
  Sex: Female
  Weight: 55.33 kg

DRUGS (5)
  1. MEPHYTON [Concomitant]
     Active Substance: PHYTONADIONE
     Dosage: 5 MG, UNK
     Dates: start: 20170726
  2. CHLORHEXIDINE [Concomitant]
     Active Substance: CHLORHEXIDINE
     Dosage: UNK
  3. PROCRIT [Suspect]
     Active Substance: ERYTHROPOIETIN
     Indication: NEPHROGENIC ANAEMIA
     Dosage: UNK
     Route: 065
     Dates: start: 20161228
  4. ARANESP [Suspect]
     Active Substance: DARBEPOETIN ALFA
     Dosage: 0.45 MUG, (EVERY 28 DAYS)
     Route: 058
  5. ARANESP [Suspect]
     Active Substance: DARBEPOETIN ALFA
     Indication: NEPHROGENIC ANAEMIA
     Dosage: 25 MUG, Q4WK
     Route: 058
     Dates: start: 20170104

REACTIONS (2)
  - Therapeutic response decreased [Unknown]
  - Hospitalisation [Not Recovered/Not Resolved]

NARRATIVE: CASE EVENT DATE: 2017
